FAERS Safety Report 14589365 (Version 2)
Quarter: 2018Q2

REPORT INFORMATION
  Report Type: Spontaneous
  Country: US (occurrence: US)
  Receive Date: 20180302
  Receipt Date: 20180504
  Transmission Date: 20180711
  Serious: No
  Sender: FDA-Public Use
  Company Number: US-JNJFOC-20180222736

PATIENT
  Age: 53 Year
  Sex: Female
  Weight: 68.04 kg

DRUGS (2)
  1. WOMENS ROGAINE UNSCENTED [Suspect]
     Active Substance: MINOXIDIL
     Route: 061
  2. WOMENS ROGAINE UNSCENTED [Suspect]
     Active Substance: MINOXIDIL
     Indication: ALOPECIA
     Dosage: USING LESS THAN THE 1/2 CAPFUL, BUT NOT SURE OF THE EXACT AMOUNT
     Route: 061
     Dates: start: 201801

REACTIONS (3)
  - Hair texture abnormal [Unknown]
  - Underdose [Unknown]
  - Product formulation issue [Unknown]
